FAERS Safety Report 19076048 (Version 3)
Quarter: 2021Q2

REPORT INFORMATION
  Report Type: Spontaneous
  Country: IL (occurrence: IL)
  Receive Date: 20210330
  Receipt Date: 20210419
  Transmission Date: 20210717
  Serious: Yes (Other)
  Sender: FDA-Public Use
  Company Number: IL-SEATTLE GENETICS-2021SGN01752

PATIENT
  Sex: Male

DRUGS (3)
  1. GLUCOPHAGE [Concomitant]
     Active Substance: METFORMIN HYDROCHLORIDE
  2. ADCETRIS [Suspect]
     Active Substance: BRENTUXIMAB VEDOTIN
     Dosage: 1.2 MILLIGRAM/KILOGRAM, Q2WEEKS
     Route: 042
     Dates: start: 20210314
  3. ADCETRIS [Suspect]
     Active Substance: BRENTUXIMAB VEDOTIN
     Indication: HODGKIN^S DISEASE REFRACTORY
     Dosage: 1.8 MILLIGRAM/KILOGRAM, Q2WEEKS
     Route: 042
     Dates: start: 20210228

REACTIONS (4)
  - Hyperlipidaemia [Unknown]
  - Liver function test increased [Unknown]
  - Pancreatitis [Not Recovered/Not Resolved]
  - Hypertriglyceridaemia [Recovered/Resolved]
